FAERS Safety Report 20542323 (Version 1)
Quarter: 2022Q1

REPORT INFORMATION
  Report Type: Spontaneous
  Country: CN (occurrence: CN)
  Receive Date: 20220302
  Receipt Date: 20220302
  Transmission Date: 20220423
  Serious: Yes (Hospitalization, Other)
  Sender: FDA-Public Use
  Company Number: CN-BRISTOL-MYERS SQUIBB COMPANY-BMS-2022-026291

PATIENT
  Age: 31 Year
  Sex: Female
  Weight: 62 kg

DRUGS (1)
  1. SPRYCEL [Suspect]
     Active Substance: DASATINIB
     Indication: Chronic leukaemia
     Dosage: 70 MILLIGRAM, BID
     Dates: start: 202109, end: 202112

REACTIONS (2)
  - Bone marrow disorder [Unknown]
  - Off label use [Unknown]

NARRATIVE: CASE EVENT DATE: 20211223
